FAERS Safety Report 21914564 (Version 1)
Quarter: 2023Q1

REPORT INFORMATION
  Report Type: Spontaneous
  Country: US (occurrence: US)
  Receive Date: 20230126
  Receipt Date: 20230126
  Transmission Date: 20230418
  Serious: Yes (Other)
  Sender: FDA-Public Use
  Company Number: US-AMGEN-USASP2023008884

PATIENT

DRUGS (1)
  1. PROLIA [Suspect]
     Active Substance: DENOSUMAB
     Indication: Osteoporosis
     Dosage: UNK
     Route: 065

REACTIONS (11)
  - Atrial fibrillation [Unknown]
  - Drug intolerance [Unknown]
  - Underweight [Unknown]
  - Eyelid rash [Unknown]
  - Eye swelling [Unknown]
  - Eye disorder [Unknown]
  - Hypotension [Unknown]
  - Nausea [Unknown]
  - Musculoskeletal discomfort [Unknown]
  - Headache [Unknown]
  - Insomnia [Unknown]
